FAERS Safety Report 12619572 (Version 1)
Quarter: 2016Q3

REPORT INFORMATION
  Report Type: Spontaneous
  Country: GR (occurrence: GR)
  Receive Date: 20160803
  Receipt Date: 20160803
  Transmission Date: 20161109
  Serious: Yes (Other)
  Sender: FDA-Public Use
  Company Number: GR-PFIZER INC-3270000

PATIENT
  Age: 59 Year
  Sex: Female

DRUGS (4)
  1. ZOMETA [Suspect]
     Active Substance: ZOLEDRONIC ACID
     Indication: BREAST CANCER
     Dosage: UNK
  2. EPIRUBICIN HCL [Suspect]
     Active Substance: EPIRUBICIN HYDROCHLORIDE
     Indication: BREAST CANCER
     Dosage: UNK
  3. OXALIPLATIN. [Suspect]
     Active Substance: OXALIPLATIN
     Indication: BREAST CANCER
     Dosage: UNK
  4. FLUOROURACIL. [Suspect]
     Active Substance: FLUOROURACIL
     Indication: BREAST CANCER
     Dosage: UNK

REACTIONS (1)
  - Hypersensitivity vasculitis [Recovered/Resolved]
